FAERS Safety Report 12924086 (Version 1)
Quarter: 2016Q4

REPORT INFORMATION
  Report Type: Spontaneous
  Country: US (occurrence: US)
  Receive Date: 20161109
  Receipt Date: 20161109
  Transmission Date: 20170207
  Serious: Yes (Death)
  Sender: FDA-Public Use
  Company Number: US-CONCORDIA PHARMACEUTICALS INC.-GSH201611-005602

PATIENT
  Age: 52 Year
  Sex: Female

DRUGS (8)
  1. PHENYTOIN. [Suspect]
     Active Substance: PHENYTOIN
     Route: 048
  2. CARVEDILOL. [Suspect]
     Active Substance: CARVEDILOL
     Route: 048
  3. DILTIAZEM. [Suspect]
     Active Substance: DILTIAZEM
     Route: 048
  4. CLOPIDOGREL [Suspect]
     Active Substance: CLOPIDOGREL BISULFATE
     Route: 048
  5. POTASSIUM CHLORIDE. [Suspect]
     Active Substance: POTASSIUM CHLORIDE
     Route: 048
  6. CLONIDINE. [Suspect]
     Active Substance: CLONIDINE
     Route: 048
  7. LISINOPRIL. [Suspect]
     Active Substance: LISINOPRIL
     Route: 048
  8. METOPROLOL (EXTENDED RELEASE) [Suspect]
     Active Substance: METOPROLOL SUCCINATE
     Route: 048

REACTIONS (1)
  - Medication error [Fatal]
